FAERS Safety Report 10021020 (Version 1)
Quarter: 2014Q1

REPORT INFORMATION
  Report Type: Spontaneous
  Country: US (occurrence: None)
  Receive Date: 20140318
  Receipt Date: 20140318
  Transmission Date: 20141002
  Serious: Yes (Disabling)
  Sender: FDA-Public Use
  Company Number: None

PATIENT
  Age: 59 Year
  Sex: Female
  Weight: 72.58 kg

DRUGS (1)
  1. FLUOXETINE [Suspect]
     Indication: MAJOR DEPRESSION
     Dosage: 1-2 PILLS/DAY  ONCE DAILY TAKEN BY MOUTH
     Route: 048
     Dates: start: 20140117, end: 20140316

REACTIONS (5)
  - Product substitution issue [None]
  - Drug ineffective [None]
  - Depression [None]
  - Decreased activity [None]
  - Product formulation issue [None]
